FAERS Safety Report 19744812 (Version 3)
Quarter: 2022Q1

REPORT INFORMATION
  Report Type: Spontaneous
  Country: DE (occurrence: DE)
  Receive Date: 20210825
  Receipt Date: 20220207
  Transmission Date: 20220424
  Serious: Yes (Hospitalization)
  Sender: FDA-Public Use
  Company Number: DE-ASTRAZENECA-2021A443624

PATIENT
  Age: 63 Year
  Sex: Female

DRUGS (50)
  1. CARBOPLATIN [Suspect]
     Active Substance: CARBOPLATIN
     Indication: Ovarian cancer
     Route: 042
     Dates: start: 20210708, end: 20210708
  2. CARBOPLATIN [Suspect]
     Active Substance: CARBOPLATIN
     Route: 042
     Dates: start: 20210309, end: 20210309
  3. CARBOPLATIN [Suspect]
     Active Substance: CARBOPLATIN
     Route: 042
     Dates: start: 20210617, end: 20210617
  4. CARBOPLATIN [Suspect]
     Active Substance: CARBOPLATIN
     Route: 042
     Dates: start: 20210331, end: 20210331
  5. CARBOPLATIN [Suspect]
     Active Substance: CARBOPLATIN
     Route: 042
     Dates: start: 20210423, end: 20210423
  6. CARBOPLATIN [Suspect]
     Active Substance: CARBOPLATIN
     Route: 042
     Dates: start: 20210512, end: 20210512
  7. CARBOPLATIN [Suspect]
     Active Substance: CARBOPLATIN
     Route: 042
     Dates: start: 20210309, end: 20210309
  8. PACLITAXEL [Suspect]
     Active Substance: PACLITAXEL
     Indication: Ovarian cancer
     Route: 042
     Dates: start: 20210708, end: 20210708
  9. PACLITAXEL [Suspect]
     Active Substance: PACLITAXEL
     Route: 042
     Dates: start: 20210309, end: 20210309
  10. PACLITAXEL [Suspect]
     Active Substance: PACLITAXEL
     Route: 042
     Dates: start: 20210617, end: 20210617
  11. PACLITAXEL [Suspect]
     Active Substance: PACLITAXEL
     Route: 042
     Dates: start: 20210512, end: 20210512
  12. PACLITAXEL [Suspect]
     Active Substance: PACLITAXEL
     Route: 042
     Dates: start: 20210331, end: 20210331
  13. PACLITAXEL [Suspect]
     Active Substance: PACLITAXEL
     Route: 042
     Dates: start: 20210423, end: 20210423
  14. PACLITAXEL [Suspect]
     Active Substance: PACLITAXEL
     Route: 042
     Dates: start: 20210708, end: 20210708
  15. PACLITAXEL [Suspect]
     Active Substance: PACLITAXEL
     Route: 042
     Dates: start: 20210309, end: 20210309
  16. DURVALUMAB [Suspect]
     Active Substance: DURVALUMAB
     Indication: Ovarian cancer
     Route: 042
     Dates: start: 20210728, end: 20210728
  17. DURVALUMAB [Suspect]
     Active Substance: DURVALUMAB
     Route: 042
     Dates: start: 20210511, end: 20210511
  18. DURVALUMAB [Suspect]
     Active Substance: DURVALUMAB
     Route: 042
     Dates: start: 20210707, end: 20210707
  19. DURVALUMAB [Suspect]
     Active Substance: DURVALUMAB
     Route: 042
     Dates: start: 20210422, end: 20210422
  20. DURVALUMAB [Suspect]
     Active Substance: DURVALUMAB
     Route: 042
     Dates: start: 20210330, end: 20210330
  21. DURVALUMAB [Suspect]
     Active Substance: DURVALUMAB
     Route: 042
     Dates: start: 20210616, end: 20210616
  22. DURVALUMAB [Suspect]
     Active Substance: DURVALUMAB
     Route: 042
     Dates: start: 20210511, end: 20210511
  23. DURVALUMAB [Suspect]
     Active Substance: DURVALUMAB
     Route: 042
     Dates: start: 20210422, end: 20210422
  24. DURVALUMAB [Suspect]
     Active Substance: DURVALUMAB
     Route: 042
     Dates: start: 20210616, end: 20210616
  25. DURVALUMAB [Suspect]
     Active Substance: DURVALUMAB
     Route: 042
     Dates: start: 20210330, end: 20210330
  26. DURVALUMAB [Suspect]
     Active Substance: DURVALUMAB
     Route: 042
     Dates: start: 20210707, end: 20210707
  27. DURVALUMAB [Suspect]
     Active Substance: DURVALUMAB
     Route: 042
     Dates: start: 20210707, end: 20210707
  28. DURVALUMAB [Suspect]
     Active Substance: DURVALUMAB
     Route: 042
     Dates: start: 20210818, end: 20210818
  29. GRANISETRON [Concomitant]
     Active Substance: GRANISETRON
     Indication: Chemotherapy side effect prophylaxis
     Route: 042
     Dates: start: 20210309, end: 20210708
  30. POLYETHYLENE GLYCOL 3350\POTASSIUM CHLORIDE\SODIUM BICARBONATE\SODIUM [Concomitant]
     Active Substance: POLYETHYLENE GLYCOL 3350\POTASSIUM CHLORIDE\SODIUM BICARBONATE\SODIUM CHLORIDE
     Indication: Constipation
     Dosage: MOVICOL-LAXANS
     Route: 048
     Dates: start: 20210321
  31. POLYETHYLENE GLYCOL 3350\POTASSIUM CHLORIDE\SODIUM BICARBONATE\SODIUM [Concomitant]
     Active Substance: POLYETHYLENE GLYCOL 3350\POTASSIUM CHLORIDE\SODIUM BICARBONATE\SODIUM CHLORIDE
     Route: 048
     Dates: start: 20210511
  32. IBUPROFEN LYSINE [Concomitant]
     Active Substance: IBUPROFEN LYSINE
     Indication: Headache
     Dosage: DOLORMIN EXTRA
     Route: 048
     Dates: start: 20210422
  33. DIMETHINDENE MALEATE [Concomitant]
     Active Substance: DIMETHINDENE MALEATE
     Indication: Chemotherapy side effect prophylaxis
     Route: 042
     Dates: start: 20210309, end: 20210708
  34. LEVOTHYROXINE SODIUM [Concomitant]
     Active Substance: LEVOTHYROXINE SODIUM
     Indication: Surgery
     Route: 048
     Dates: start: 19940101
  35. APREPITANT [Concomitant]
     Active Substance: APREPITANT
     Indication: Chemotherapy side effect prophylaxis
     Route: 048
     Dates: start: 20210309, end: 20210708
  36. BEVACIZUMAB [Concomitant]
     Active Substance: BEVACIZUMAB
     Indication: Ovarian cancer
     Route: 042
     Dates: start: 20210422, end: 20210422
  37. BEVACIZUMAB [Concomitant]
     Active Substance: BEVACIZUMAB
     Route: 042
     Dates: start: 20210330, end: 20210330
  38. BEVACIZUMAB [Concomitant]
     Active Substance: BEVACIZUMAB
     Route: 042
     Dates: start: 20210707, end: 20210707
  39. BEVACIZUMAB [Concomitant]
     Active Substance: BEVACIZUMAB
     Route: 042
     Dates: start: 20210616, end: 20210616
  40. BEVACIZUMAB [Concomitant]
     Active Substance: BEVACIZUMAB
     Route: 042
     Dates: start: 20210512, end: 20210512
  41. BEVACIZUMAB [Concomitant]
     Active Substance: BEVACIZUMAB
     Route: 042
     Dates: start: 20210728, end: 20210728
  42. BEVACIZUMAB [Concomitant]
     Active Substance: BEVACIZUMAB
     Route: 042
     Dates: start: 20210818, end: 20210818
  43. FAMOTIDINE [Concomitant]
     Active Substance: FAMOTIDINE
     Indication: Chemotherapy side effect prophylaxis
     Route: 048
     Dates: start: 20210309, end: 20210708
  44. DEXAMETHASONE SODIUM PHOSPHATE [Concomitant]
     Active Substance: DEXAMETHASONE SODIUM PHOSPHATE
     Indication: Chemotherapy side effect prophylaxis
     Route: 042
     Dates: start: 20210309, end: 20210708
  45. DEXAMETHASONE SODIUM PHOSPHATE [Concomitant]
     Active Substance: DEXAMETHASONE SODIUM PHOSPHATE
     Indication: Hypersensitivity
     Route: 042
     Dates: start: 20210331, end: 20210331
  46. DEXAMETHASONE SODIUM PHOSPHATE [Concomitant]
     Active Substance: DEXAMETHASONE SODIUM PHOSPHATE
     Indication: Infusion related reaction
  47. DIMETHINDENE MALEATE [Concomitant]
     Active Substance: DIMETHINDENE MALEATE
     Indication: Hypersensitivity
     Route: 042
     Dates: start: 20210331, end: 20210331
  48. LOPERAMIDE HYDROCHLORIDE [Concomitant]
     Active Substance: LOPERAMIDE HYDROCHLORIDE
     Indication: Diarrhoea
     Dosage: IMMODIUM
     Route: 048
     Dates: start: 20210517, end: 20210517
  49. LOPERAMIDE HYDROCHLORIDE [Concomitant]
     Active Substance: LOPERAMIDE HYDROCHLORIDE
     Dosage: IMMODIUM
     Route: 048
     Dates: start: 20210517, end: 20210520
  50. PANTOPRAZOLE [Concomitant]
     Active Substance: PANTOPRAZOLE
     Indication: Abdominal pain upper
     Route: 048
     Dates: start: 20210517, end: 20210520

REACTIONS (1)
  - Arthralgia [Recovered/Resolved]

NARRATIVE: CASE EVENT DATE: 20210517
